FAERS Safety Report 4540807-3 (Version None)
Quarter: 2004Q4

REPORT INFORMATION
  Report Type: 
  Country: None (occurrence: None)
  Receive Date: 20041229
  Receipt Date: 20041206
  Transmission Date: 20050328
  Serious: Yes (Other)
  Sender: FDA-Public Use
  Company Number: US-MERCK-0412USA00696

PATIENT
  Age: 80 Year
  Sex: Female
  Weight: 39 kg

DRUGS (7)
  1. FOSAMAX [Suspect]
     Indication: OSTEOPOROSIS
     Route: 048
     Dates: start: 20040901
  2. REMERON [Concomitant]
     Indication: DECREASED APPETITE
     Route: 048
     Dates: start: 20040908
  3. OS-CAL + D [Concomitant]
     Indication: OSTEOPOROSIS
     Route: 048
     Dates: start: 20040902
  4. VITAMINS (UNSPECIFIED) [Concomitant]
     Indication: VITAMIN SUPPLEMENTATION
     Route: 048
     Dates: start: 20040902
  5. REGLAN [Concomitant]
     Indication: GASTROOESOPHAGEAL REFLUX DISEASE
     Route: 048
     Dates: start: 20040902
  6. LOTREL [Concomitant]
     Indication: HYPERTENSION
     Route: 048
     Dates: start: 20040902
  7. REMINYL [Concomitant]
     Indication: DEMENTIA
     Route: 048
     Dates: start: 20040902

REACTIONS (2)
  - BLEPHARITIS [None]
  - CONJUNCTIVITIS [None]
